FAERS Safety Report 14801343 (Version 4)
Quarter: 2020Q2

REPORT INFORMATION
  Report Type: Spontaneous
  Country: US (occurrence: US)
  Receive Date: 20180424
  Receipt Date: 20200629
  Transmission Date: 20200713
  Serious: Yes (Death, Other)
  Sender: FDA-Public Use
  Company Number: US-ASTRAZENECA-2018SE53601

PATIENT
  Age: 26176 Day
  Sex: Female

DRUGS (29)
  1. SENSIPAR [Concomitant]
     Active Substance: CINACALCET HYDROCHLORIDE
  2. NEXIUM [Suspect]
     Active Substance: ESOMEPRAZOLE MAGNESIUM
     Route: 048
     Dates: start: 1990
  3. PREVACID [Suspect]
     Active Substance: LANSOPRAZOLE
     Route: 048
  4. LORATADINE. [Concomitant]
     Active Substance: LORATADINE
  5. HYDROCODONE BITARTRATE AND ACETAMINOPHEN [Concomitant]
     Active Substance: ACETAMINOPHEN\HYDROCODONE BITARTRATE
  6. PRAVACHOL [Concomitant]
     Active Substance: PRAVASTATIN SODIUM
  7. NEXIUM 24HR [Suspect]
     Active Substance: ESOMEPRAZOLE MAGNESIUM
     Route: 048
  8. PROTONIX [Suspect]
     Active Substance: PANTOPRAZOLE SODIUM
     Route: 048
     Dates: start: 20011025, end: 20020117
  9. PRAVASTATIN. [Concomitant]
     Active Substance: PRAVASTATIN
  10. LORATADINE. [Concomitant]
     Active Substance: LORATADINE
  11. PREVACID [Suspect]
     Active Substance: LANSOPRAZOLE
     Route: 048
     Dates: start: 1990
  12. PROTONIX [Suspect]
     Active Substance: PANTOPRAZOLE SODIUM
     Route: 065
     Dates: start: 2001, end: 2010
  13. HYTRIN [Concomitant]
     Active Substance: TERAZOSIN HYDROCHLORIDE
  14. NEXIUM [Suspect]
     Active Substance: ESOMEPRAZOLE MAGNESIUM
     Route: 048
  15. NEXIUM [Suspect]
     Active Substance: ESOMEPRAZOLE MAGNESIUM
     Route: 048
     Dates: start: 2001, end: 2010
  16. PRILOSEC [Suspect]
     Active Substance: OMEPRAZOLE MAGNESIUM
     Route: 048
     Dates: start: 1990
  17. DEXILANT [Suspect]
     Active Substance: DEXLANSOPRAZOLE
     Route: 048
  18. PREVACID 24 HR [Suspect]
     Active Substance: LANSOPRAZOLE
     Route: 048
  19. ACIPHEX [Suspect]
     Active Substance: RABEPRAZOLE SODIUM
     Route: 048
  20. MIDODRINE HCL [Concomitant]
     Active Substance: MIDODRINE HYDROCHLORIDE
  21. ALLOPURINOL. [Concomitant]
     Active Substance: ALLOPURINOL
  22. NORVASC [Concomitant]
     Active Substance: AMLODIPINE BESYLATE
  23. PRAVASTATIN. [Concomitant]
     Active Substance: PRAVASTATIN
  24. PRILOSEC OTC [Suspect]
     Active Substance: OMEPRAZOLE MAGNESIUM
     Route: 048
  25. RENAGEL [Concomitant]
     Active Substance: SEVELAMER HYDROCHLORIDE
  26. NEXIUM [Suspect]
     Active Substance: ESOMEPRAZOLE MAGNESIUM
     Route: 048
     Dates: start: 20090313
  27. NEXIUM [Suspect]
     Active Substance: ESOMEPRAZOLE MAGNESIUM
     Route: 048
     Dates: start: 20090313, end: 20100112
  28. NITROSTAT [Concomitant]
     Active Substance: NITROGLYCERIN
  29. CEPHALEXIN. [Concomitant]
     Active Substance: CEPHALEXIN

REACTIONS (8)
  - Acute kidney injury [Unknown]
  - Hypertension [Fatal]
  - Tubulointerstitial nephritis [Unknown]
  - Cardiac arrest [Fatal]
  - Renal failure [Fatal]
  - Ventricular fibrillation [Fatal]
  - Chronic kidney disease [Unknown]
  - End stage renal disease [Unknown]

NARRATIVE: CASE EVENT DATE: 20100118
